FAERS Safety Report 25199915 (Version 1)
Quarter: 2025Q2

REPORT INFORMATION
  Report Type: Report from Study
  Country: US (occurrence: US)
  Receive Date: 20250415
  Receipt Date: 20250415
  Transmission Date: 20250717
  Serious: Yes (Hospitalization)
  Sender: JAZZ
  Company Number: US-JAZZ PHARMACEUTICALS-2025-US-009318

PATIENT
  Sex: Male

DRUGS (1)
  1. EPIDIOLEX [Suspect]
     Active Substance: CANNABIDIOL
     Indication: Lennox-Gastaut syndrome
     Dosage: 1.5 MILLILITER, BID
     Route: 048
     Dates: start: 20250127, end: 20250311

REACTIONS (2)
  - Blood sodium increased [Recovering/Resolving]
  - Irritability [Recovering/Resolving]
